FAERS Safety Report 7568741-5 (Version None)
Quarter: 2011Q2

REPORT INFORMATION
  Report Type: 
  Country: None (occurrence: None)
  Receive Date: 20110623
  Receipt Date: 20110616
  Transmission Date: 20111010
  Serious: Yes (Other)
  Sender: FDA-Public Use
  Company Number: BR-JNJFOC-20110608947

PATIENT
  Sex: Female

DRUGS (1)
  1. NICORETTE [Suspect]
     Indication: SMOKING CESSATION THERAPY
     Dosage: USES ONE BOX PER WEEK
     Route: 048

REACTIONS (3)
  - INTENTIONAL DRUG MISUSE [None]
  - DEPENDENCE [None]
  - MUSCLE SPASMS [None]
